FAERS Safety Report 19779375 (Version 2)
Quarter: 2021Q3

REPORT INFORMATION
  Report Type: Spontaneous
  Country: FR (occurrence: FR)
  Receive Date: 20210902
  Receipt Date: 20210920
  Transmission Date: 20211014
  Serious: Yes (Other)
  Sender: FDA-Public Use
  Company Number: FR-SANTEN INC-2021-FRA-008269

PATIENT
  Age: 8 Year
  Sex: Female

DRUGS (7)
  1. MAXITROL [Concomitant]
     Active Substance: DEXAMETHASONE\NEOMYCIN SULFATE\POLYMYXIN B SULFATE
     Dosage: 2 DROPS PER DAY FOR 10 DAYS
     Route: 047
  2. MAXITROL [Concomitant]
     Active Substance: DEXAMETHASONE\NEOMYCIN SULFATE\POLYMYXIN B SULFATE
     Dosage: 4 DROPS PER DAY FOR 10 DAYS
     Route: 047
  3. ZALERG [Concomitant]
     Active Substance: KETOTIFEN FUMARATE
     Dosage: ONCE OR TWICE A DAY
     Route: 047
  4. NEOVIS [Concomitant]
     Dosage: FROM TIME TO TIME
     Route: 047
  5. MAXITROL [Concomitant]
     Active Substance: DEXAMETHASONE\NEOMYCIN SULFATE\POLYMYXIN B SULFATE
     Dosage: 3 DROPS PER DAY FOR 10 DAYS
     Route: 047
  6. VERKAZIA [Suspect]
     Active Substance: CYCLOSPORINE
     Indication: KERATITIS
     Dosage: 4 DROPS PER DAY IN BOTH EYES
     Route: 047
     Dates: start: 20210801
  7. MAXITROL [Concomitant]
     Active Substance: DEXAMETHASONE\NEOMYCIN SULFATE\POLYMYXIN B SULFATE
     Dosage: 1 DROP PER DAY FOR 10 DAYS
     Route: 047
     Dates: start: 202108

REACTIONS (3)
  - Leukopenia [Not Recovered/Not Resolved]
  - Off label use [Unknown]
  - Product administration error [Unknown]

NARRATIVE: CASE EVENT DATE: 202108
